FAERS Safety Report 19461828 (Version 2)
Quarter: 2021Q3

REPORT INFORMATION
  Report Type: Spontaneous
  Country: CZ (occurrence: CZ)
  Receive Date: 20210625
  Receipt Date: 20210726
  Transmission Date: 20211014
  Serious: Yes (Other)
  Sender: FDA-Public Use
  Company Number: CZ-ELI_LILLY_AND_COMPANY-CZ202106006929

PATIENT
  Age: 35 Year
  Sex: Male

DRUGS (1)
  1. LYUMJEV [Suspect]
     Active Substance: INSULIN LISPRO-AABC
     Indication: PRODUCT USED FOR UNKNOWN INDICATION
     Dosage: UNK, DAILY
     Route: 058
     Dates: start: 202104

REACTIONS (5)
  - Application site folliculitis [Recovered/Resolved]
  - Infusion site pruritus [Recovered/Resolved]
  - Scratch [Recovered/Resolved]
  - Infusion site erythema [Recovered/Resolved]
  - Infusion site abscess [Recovered/Resolved]
